FAERS Safety Report 8090136-9 (Version None)
Quarter: 2012Q1

REPORT INFORMATION
  Report Type: 
  Country: None (occurrence: None)
  Receive Date: 20120129
  Receipt Date: 20111019
  Transmission Date: 20120608
  Serious: No
  Sender: FDA-Public Use
  Company Number: US-ABBOTT-11P-163-0866546-00

PATIENT
  Age: 46 Year
  Sex: Female

DRUGS (26)
  1. ULTRAM [Concomitant]
     Indication: ARTHRALGIA
     Dosage: DAILY
  2. METFFORMIN HYDROCHLORIDE [Concomitant]
     Indication: TYPE 2 DIABETES MELLITUS
  3. METOPROLOL TARTRATE [Concomitant]
     Indication: HYPERTENSION
  4. PREDNISONE TAB [Concomitant]
     Indication: RHEUMATOID ARTHRITIS
  5. NORVASC [Concomitant]
     Indication: ANGINA PECTORIS
  6. VICODIN [Concomitant]
     Indication: PAIN
     Dosage: DAILY AS REQUIRED
  7. HUMIRA [Suspect]
     Indication: RHEUMATOID ARTHRITIS
     Dates: start: 20080601, end: 20110301
  8. VESICARE [Concomitant]
     Indication: HYPERTONIC BLADDER
     Dosage: DAILY
  9. SIMBICORT [Concomitant]
     Indication: CHRONIC OBSTRUCTIVE PULMONARY DISEASE
     Dosage: 80/1.5MCG DAILY
  10. PROAIR HFA [Concomitant]
     Indication: ASTHMA
     Dosage: 90, DAILY
  11. HYDROXYZINE [Concomitant]
     Indication: PRURITUS
  12. METHOTREXATE [Concomitant]
     Indication: RHEUMATOID ARTHRITIS
     Dosage: WEEKLY
  13. TRILIPIX [Concomitant]
     Indication: BLOOD CHOLESTEROL INCREASED
     Dosage: DAILY
  14. PREVACID [Concomitant]
     Indication: GASTROOESOPHAGEAL REFLUX DISEASE
     Dosage: BEFORE MEALS DAILY
  15. NORFLEX [Concomitant]
     Indication: MUSCLE RELAXANT THERAPY
  16. COZAAR [Concomitant]
     Indication: HYPERTENSION
  17. NORVASC [Concomitant]
     Indication: HYPERTENSION
     Dosage: DAILY
  18. LEVBID [Concomitant]
     Indication: GASTROINTESTINAL DISORDER
  19. NEURONTIN [Concomitant]
     Indication: ARTHRALGIA
  20. CELEXA [Concomitant]
     Indication: PRODUCT USED FOR UNKNOWN INDICATION
     Dosage: DAILY
  21. SINGULAIR [Concomitant]
     Indication: ASTHMA
     Dosage: DAILY
  22. PROAIR HFA [Concomitant]
     Indication: CHRONIC OBSTRUCTIVE PULMONARY DISEASE
  23. LISINOPRIL [Concomitant]
     Indication: CARDIAC FAILURE CONGESTIVE
     Dosage: 20-25MG DAILY
  24. LISINOPRIL [Concomitant]
     Indication: HYPERTENSION
  25. SIMBICORT [Concomitant]
     Indication: ASTHMA
  26. MUSINEX [Concomitant]
     Indication: RESPIRATORY TRACT CONGESTION
     Dosage: AS REQUIRED

REACTIONS (4)
  - BREAKTHROUGH PAIN [None]
  - DRUG INEFFECTIVE [None]
  - TYPE 2 DIABETES MELLITUS [None]
  - CHRONIC OBSTRUCTIVE PULMONARY DISEASE [None]
